FAERS Safety Report 20113483 (Version 1)
Quarter: 2021Q4

REPORT INFORMATION
  Report Type: Spontaneous
  Country: CN (occurrence: CN)
  Receive Date: 20211125
  Receipt Date: 20211125
  Transmission Date: 20220303
  Serious: Yes (Hospitalization)
  Sender: FDA-Public Use
  Company Number: CN-PFIZER INC-202101577499

PATIENT
  Age: 3 Year
  Sex: Female
  Weight: 17 kg

DRUGS (2)
  1. AZITHROMYCIN [Suspect]
     Active Substance: AZITHROMYCIN
     Indication: Pneumonia
     Dosage: 0.15 G, 1X/DAY
     Route: 048
     Dates: start: 20211005, end: 20211006
  2. ERYTHROMYCIN CYCLOCARBONATE [Concomitant]
     Active Substance: ERYTHROMYCIN CYCLOCARBONATE
     Indication: Pneumonia
     Dosage: 0.15 G, 2X/DAY
     Route: 048
     Dates: start: 20211006, end: 20211007

REACTIONS (3)
  - Drug hypersensitivity [Recovered/Resolved]
  - Rash maculo-papular [Recovered/Resolved]
  - Pruritus [Recovered/Resolved]

NARRATIVE: CASE EVENT DATE: 20211007
